FAERS Safety Report 6877880-3 (Version None)
Quarter: 2010Q3

REPORT INFORMATION
  Report Type: 
  Country: None (occurrence: None)
  Receive Date: 20100727
  Receipt Date: 20100716
  Transmission Date: 20110219
  Serious: Yes (Other)
  Sender: FDA-Public Use
  Company Number: PHHY2010CN47068

PATIENT
  Age: 55 Year
  Sex: Female

DRUGS (1)
  1. MIACALCIN [Suspect]
     Dosage: ONCE A DAY
     Dates: start: 20100711, end: 20100715

REACTIONS (3)
  - DIZZINESS [None]
  - SKIN EXFOLIATION [None]
  - YELLOW SKIN [None]
